FAERS Safety Report 7792540-2 (Version None)
Quarter: 2011Q3

REPORT INFORMATION
  Report Type: 
  Country: None (occurrence: None)
  Receive Date: 20110930
  Receipt Date: 20110930
  Transmission Date: 20111222
  Serious: Yes (Other)
  Sender: FDA-Public Use
  Company Number: None

PATIENT
  Sex: Female
  Weight: 63.05 kg

DRUGS (2)
  1. AZITHROMYCIN [Suspect]
     Indication: LOWER RESPIRATORY TRACT INFECTION
     Dates: start: 20110824, end: 20110830
  2. AZITHROMYCIN [Suspect]
     Indication: INFECTION
     Dates: start: 20110824, end: 20110830

REACTIONS (1)
  - ORAL FUNGAL INFECTION [None]
